FAERS Safety Report 5768017-2 (Version None)
Quarter: 2008Q2

REPORT INFORMATION
  Report Type: 
  Country: None (occurrence: None)
  Receive Date: 20080601
  Receipt Date: 20080311
  Transmission Date: 20081010
  Serious: No
  Sender: FDA-Public Use
  Company Number: US200803002543

PATIENT
  Age: 63 Year
  Sex: Male

DRUGS (2)
  1. BYETTA [Suspect]
     Dosage: 10 UG, SUBCUTANEOUS
     Route: 058
     Dates: start: 20070101
  2. EXENATIDE 10MCG PEN, DISPOSABLE DEVICE (EXENATIDE PEN (10MCG)) PEN,DIS [Concomitant]

REACTIONS (2)
  - INCORRECT DOSE ADMINISTERED [None]
  - MALAISE [None]
